FAERS Safety Report 14219870 (Version 1)
Quarter: 2017Q4

REPORT INFORMATION
  Report Type: Spontaneous
  Country: US (occurrence: US)
  Receive Date: 20171123
  Receipt Date: 20171123
  Transmission Date: 20180321
  Serious: No
  Sender: FDA-Public Use
  Company Number: US-009507513-1710USA015195

PATIENT
  Sex: Female

DRUGS (1)
  1. PREGNYL [Suspect]
     Active Substance: CHORIOGONADOTROPIN ALFA
     Indication: OVULATION INDUCTION
     Dosage: 1 DF, EVERY 3RD IVF CYCLE, ROUTE OF ADMINISTRATION WAS REPORTED AS ^INJECTION^
     Dates: start: 2015, end: 201710

REACTIONS (3)
  - No adverse event [Unknown]
  - Intentional product misuse [Unknown]
  - Product quality issue [Unknown]
